FAERS Safety Report 10489358 (Version 2)
Quarter: 2014Q4

REPORT INFORMATION
  Report Type: Spontaneous
  Country: US (occurrence: None)
  Receive Date: 20140930
  Receipt Date: 20141231
  Transmission Date: 20150528
  Serious: Yes (Hospitalization)
  Sender: FDA-Public Use
  Company Number: FK201403807

PATIENT
  Age: 63 Year
  Sex: Male

DRUGS (5)
  1. TEMSIROLIMUS [Suspect]
     Active Substance: TEMSIROLIMUS
     Indication: PRODUCT USED FOR UNKNOWN INDICATION
     Dosage: CYCLICAL
     Dates: start: 20140606
  2. DEXAMETHASONE (DEXAMETHASONE) [Concomitant]
     Active Substance: DEXAMETHASONE
  3. RITUXIMAB (RITUXIMAB) [Concomitant]
     Active Substance: RITUXIMAB
  4. CYTARABINE (CYTARABINE) [Concomitant]
     Active Substance: CYTARABINE
  5. CISPLATIN INJECTION [Suspect]
     Active Substance: CISPLATIN
     Indication: PRODUCT USED FOR UNKNOWN INDICATION
     Dates: start: 20140608

REACTIONS (1)
  - Renal failure [None]

NARRATIVE: CASE EVENT DATE: 20140708
